FAERS Safety Report 10045851 (Version 3)
Quarter: 2014Q2

REPORT INFORMATION
  Report Type: Report from Study
  Country: FR (occurrence: FR)
  Receive Date: 20140329
  Receipt Date: 20140425
  Transmission Date: 20141212
  Serious: Yes (Death)
  Sender: FDA-Public Use
  Company Number: FR-ROCHE-1341601

PATIENT
  Age: 31 Year
  Sex: Female

DRUGS (1)
  1. ZELBORAF [Suspect]
     Indication: NEOPLASM MALIGNANT
     Route: 065

REACTIONS (3)
  - Disease progression [Fatal]
  - Increased appetite [Not Recovered/Not Resolved]
  - Drug ineffective [Unknown]
